FAERS Safety Report 10473894 (Version 1)
Quarter: 2014Q3

REPORT INFORMATION
  Report Type: Report from Study
  Country: JP (occurrence: JP)
  Receive Date: 20140924
  Receipt Date: 20140924
  Transmission Date: 20150326
  Serious: Yes (Other)
  Sender: FDA-Public Use
  Company Number: JP-JNJFOC-20140919577

PATIENT
  Age: 51 Year
  Sex: Male
  Weight: 73 kg

DRUGS (11)
  1. AMLODIPINE [Concomitant]
     Active Substance: AMLODIPINE BESYLATE
     Indication: CHRONIC HEPATITIS C
     Route: 048
  2. LOXOPROFEN [Concomitant]
     Active Substance: LOXOPROFEN
     Indication: PROPHYLAXIS
     Route: 048
     Dates: start: 20140201, end: 20140412
  3. TALION [Concomitant]
     Active Substance: BEPOTASTINE
     Indication: PROPHYLAXIS
     Route: 048
     Dates: start: 20140201
  4. ARASENA-A [Concomitant]
     Active Substance: VIDARABINE
     Dosage: SEVERAL TIMES PER DAY
     Route: 061
     Dates: start: 20140421, end: 20140425
  5. SOVRIAD [Suspect]
     Active Substance: SIMEPREVIR
     Indication: CHRONIC HEPATITIS C
     Route: 048
     Dates: start: 20140201, end: 20140425
  6. RIBAVIRIN. [Suspect]
     Active Substance: RIBAVIRIN
     Indication: CHRONIC HEPATITIS C
     Route: 048
     Dates: start: 20140201
  7. GASLON N [Concomitant]
     Route: 048
     Dates: start: 20140329
  8. KENALOG [Concomitant]
     Active Substance: TRIAMCINOLONE ACETONIDE
     Dosage: SEVERAL TIMES PER DAY
     Route: 049
     Dates: start: 20140329, end: 20140419
  9. TAKEPRON [Concomitant]
     Active Substance: LANSOPRAZOLE
     Indication: CHRONIC HEPATITIS C
     Route: 048
  10. PEGASYS [Suspect]
     Active Substance: PEGINTERFERON ALFA-2A
     Indication: CHRONIC HEPATITIS C
     Route: 058
     Dates: start: 20140201
  11. FAMVIR (FAMCICLOVIR) [Concomitant]
     Route: 048
     Dates: start: 20140421, end: 20140425

REACTIONS (3)
  - Platelet count decreased [Not Recovered/Not Resolved]
  - Oral herpes [Recovered/Resolved]
  - Stomatitis [Recovering/Resolving]

NARRATIVE: CASE EVENT DATE: 20140215
